FAERS Safety Report 19064074 (Version 1)
Quarter: 2021Q1

REPORT INFORMATION
  Report Type: Spontaneous
  Country: GB (occurrence: GB)
  Receive Date: 20210326
  Receipt Date: 20210326
  Transmission Date: 20210420
  Serious: Yes (Other)
  Sender: FDA-Public Use
  Company Number: GB-TEVA-2021-GB-1892347

PATIENT
  Age: 38 Year
  Sex: Female

DRUGS (1)
  1. TRIMETHOPRIM. [Suspect]
     Active Substance: TRIMETHOPRIM
     Indication: ACNE
     Dosage: 300MG  TWICE A DAY, REDUCE TO 200MG DUE TO HEADACHES
     Route: 048
     Dates: start: 20210301, end: 20210310

REACTIONS (8)
  - Adverse drug reaction [Not Recovered/Not Resolved]
  - Dermatitis allergic [Not Recovered/Not Resolved]
  - Lip swelling [Recovered/Resolved with Sequelae]
  - Pruritus [Recovered/Resolved]
  - Head discomfort [Not Recovered/Not Resolved]
  - Eye pruritus [Recovered/Resolved with Sequelae]
  - Myalgia [Not Recovered/Not Resolved]
  - Fatigue [Not Recovered/Not Resolved]

NARRATIVE: CASE EVENT DATE: 20210301
